FAERS Safety Report 10263337 (Version 3)
Quarter: 2014Q3

REPORT INFORMATION
  Report Type: Spontaneous
  Country: DE (occurrence: DE)
  Receive Date: 20140626
  Receipt Date: 20140722
  Transmission Date: 20150326
  Serious: Yes (Disabling, Other)
  Sender: FDA-Public Use
  Company Number: DE-PFIZER INC-2014174103

PATIENT
  Age: 57 Year
  Sex: Female
  Weight: 76 kg

DRUGS (6)
  1. PALEXIA [Concomitant]
     Active Substance: TAPENTADOL HYDROCHLORIDE
     Dosage: UNK
     Dates: start: 20140107
  2. SPIRO COMP. [Concomitant]
     Dosage: UNK
     Dates: start: 20140107
  3. IBUHEXAL [Concomitant]
     Active Substance: IBUPROFEN
     Dosage: UNK
     Dates: start: 20140107
  4. XGEVA [Concomitant]
     Active Substance: DENOSUMAB
     Dosage: UNK
     Dates: start: 20130717
  5. EXEMESTANE. [Suspect]
     Active Substance: EXEMESTANE
     Indication: BREAST CANCER METASTATIC
     Dosage: 1 MG, 1X/DAY
     Route: 048
     Dates: start: 20121206
  6. AFINITOR [Interacting]
     Active Substance: EVEROLIMUS
     Indication: BREAST CANCER METASTATIC
     Dosage: 10 MG, 1X/DAY
     Route: 048
     Dates: start: 20121206

REACTIONS (6)
  - Drug interaction [Recovered/Resolved]
  - Oedema [Recovered/Resolved]
  - Pain [Unknown]
  - Aphthous stomatitis [Recovered/Resolved]
  - Decreased appetite [Unknown]
  - Glossitis [Recovered/Resolved]

NARRATIVE: CASE EVENT DATE: 20140314
